FAERS Safety Report 15715327 (Version 1)
Quarter: 2018Q4

REPORT INFORMATION
  Report Type: Report from Study
  Country: CA (occurrence: CA)
  Receive Date: 20181212
  Receipt Date: 20181212
  Transmission Date: 20190205
  Serious: Yes (Hospitalization, Other)
  Sender: FDA-Public Use
  Company Number: CA-MYLANLABS-2018M1079959

PATIENT
  Sex: Male

DRUGS (2)
  1. CLOZAPINE. [Suspect]
     Active Substance: CLOZAPINE
     Indication: SCHIZOPHRENIA
     Dosage: 300 MILLIGRAM, QD
     Route: 048
     Dates: start: 20180925, end: 20181010
  2. ALBUMIN [Concomitant]
     Active Substance: ALBUMIN HUMAN
     Indication: PRODUCT USED FOR UNKNOWN INDICATION
     Dosage: 300 MILLIGRAM, QD

REACTIONS (6)
  - Nausea [Unknown]
  - Diarrhoea [Unknown]
  - Myocarditis [Unknown]
  - Pericardial effusion [Unknown]
  - Pyrexia [Unknown]
  - Delirium [Unknown]

NARRATIVE: CASE EVENT DATE: 2018
